FAERS Safety Report 10073459 (Version 1)
Quarter: 2014Q2

REPORT INFORMATION
  Report Type: Spontaneous
  Country: TR (occurrence: TR)
  Receive Date: 20140411
  Receipt Date: 20140411
  Transmission Date: 20141212
  Serious: Yes (Other)
  Sender: FDA-Public Use
  Company Number: TR-WATSON-2014-06758

PATIENT
  Age: 44 Year
  Sex: Female

DRUGS (5)
  1. LEVETIRACETAM (UNKNOWN) [Suspect]
     Indication: CONVULSION
     Dosage: 2000 MG, DAILY
     Route: 065
  2. LEVETIRACETAM (UNKNOWN) [Suspect]
     Dosage: 500 MG, DAILY
     Route: 065
  3. LEVETIRACETAM (UNKNOWN) [Suspect]
     Dosage: 1000 MG, DAILY
     Route: 065
  4. CARBAMAZEPINE [Concomitant]
     Indication: CONVULSION
     Dosage: 800 MG, DAILY
     Route: 065
  5. CARBAMAZEPINE [Concomitant]
     Dosage: 1000 MG, DAILY
     Route: 065

REACTIONS (1)
  - Hypersexuality [Recovered/Resolved]
